FAERS Safety Report 19777335 (Version 1)
Quarter: 2021Q3

REPORT INFORMATION
  Report Type: Report from Study
  Country: None (occurrence: US)
  Receive Date: 20210901
  Receipt Date: 20210901
  Transmission Date: 20211014
  Serious: Yes (Other)
  Sender: FDA-Public Use
  Company Number: US-ABBVIE-21K-163-3956786-00

PATIENT
  Sex: Female

DRUGS (2)
  1. HUMIRA [Suspect]
     Active Substance: ADALIMUMAB
     Indication: PSORIATIC ARTHROPATHY
     Dosage: CITRATE FREE
     Route: 058
     Dates: end: 2021
  2. HUMIRA [Suspect]
     Active Substance: ADALIMUMAB
     Indication: PSORIASIS
     Dosage: CITRATE FREE
     Route: 058
     Dates: start: 2021

REACTIONS (8)
  - Insomnia [Not Recovered/Not Resolved]
  - Migraine [Recovered/Resolved]
  - Rash [Recovered/Resolved]
  - Rash [Recovering/Resolving]
  - Fibromyalgia [Not Recovered/Not Resolved]
  - Stress [Unknown]
  - Psoriatic arthropathy [Not Recovered/Not Resolved]
  - Dental caries [Unknown]
